FAERS Safety Report 7817789-1 (Version None)
Quarter: 2011Q4

REPORT INFORMATION
  Report Type: 
  Country: None (occurrence: None)
  Receive Date: 20111017
  Receipt Date: 20111010
  Transmission Date: 20120403
  Serious: Yes (Disabling)
  Sender: FDA-Public Use
  Company Number: US-JNJFOC-20111001959

PATIENT
  Age: 61 Year
  Sex: Female

DRUGS (12)
  1. BEVACIZUMAB [Suspect]
     Indication: BREAST CANCER
     Route: 042
     Dates: start: 20110304
  2. PACLITAXEL [Suspect]
     Dosage: OVER 1 HOUR, ON DAYS 1, 8 AND 15
     Route: 042
  3. PACLITAXEL [Suspect]
     Dosage: OVER 1 HOUR, ON DAYS 1, 8 AND 15
     Route: 042
  4. DOXORUBICIN HCL [Suspect]
     Indication: BREAST CANCER
     Dosage: DAY 1
     Route: 042
     Dates: start: 20110304, end: 20110727
  5. CYCLOPHOSPHAMIDE [Suspect]
     Indication: BREAST CANCER
     Dosage: OVER 20 TO 80 MINUTES ON DAY 1
     Route: 042
     Dates: start: 20110304, end: 20110727
  6. PACLITAXEL [Suspect]
     Dosage: OVER 1 HOUR, ON DAYS 1, 8 AND 15
     Route: 042
     Dates: start: 20110304
  7. PACLITAXEL [Suspect]
     Dosage: OVER 1 HOUR, ON DAYS 1, 8 AND 15
     Route: 042
     Dates: end: 20110721
  8. PACLITAXEL [Suspect]
     Dosage: OVER 1 HOUR, ON DAYS 1, 8 AND 15
     Route: 042
  9. PEGFILGRASTIM [Suspect]
     Indication: BREAST CANCER
     Dosage: ON DAY 2
     Route: 058
     Dates: start: 20110304
  10. PACLITAXEL [Suspect]
     Indication: BREAST CANCER
     Dosage: OVER 1 HOUR, ON DAYS 1, 8 AND 15
     Route: 042
     Dates: end: 20110727
  11. PACLITAXEL [Suspect]
     Dosage: OVER 1 HOUR, ON DAYS 1, 8 AND 15
     Route: 042
     Dates: start: 20110722
  12. PACLITAXEL [Suspect]
     Dosage: OVER 1 HOUR, ON DAYS 1, 8 AND 15
     Route: 042

REACTIONS (1)
  - PERIPHERAL SENSORY NEUROPATHY [None]
